FAERS Safety Report 20470167 (Version 1)
Quarter: 2022Q1

REPORT INFORMATION
  Report Type: Spontaneous
  Country: US (occurrence: US)
  Receive Date: 20220214
  Receipt Date: 20220214
  Transmission Date: 20220423
  Serious: No
  Sender: FDA-Public Use
  Company Number: US-MYLANLABS-2022M1005660

PATIENT
  Sex: Male
  Weight: 87.54 kg

DRUGS (1)
  1. WIXELA INHUB [Suspect]
     Active Substance: FLUTICASONE PROPIONATE\SALMETEROL XINAFOATE
     Indication: Chronic obstructive pulmonary disease
     Dosage: 250/50 MICROGRAM
     Route: 055
     Dates: start: 20220115

REACTIONS (4)
  - Device defective [Unknown]
  - Device delivery system issue [Unknown]
  - Dyspnoea [Unknown]
  - Product dose omission issue [Unknown]
